FAERS Safety Report 16035742 (Version 1)
Quarter: 2019Q1

REPORT INFORMATION
  Report Type: Report from Study
  Country: US (occurrence: US)
  Receive Date: 20190305
  Receipt Date: 20190305
  Transmission Date: 20190418
  Serious: Yes (Hospitalization, Other)
  Sender: FDA-Public Use
  Company Number: US-SA-2019SA056317

PATIENT
  Age: 57 Year
  Sex: Male

DRUGS (1)
  1. INSULIN GLARGINE [Suspect]
     Active Substance: INSULIN GLARGINE
     Indication: DIABETES MELLITUS
     Dosage: 50 U, QD
     Route: 058

REACTIONS (4)
  - Blood pressure increased [Recovered/Resolved]
  - Cardiac failure congestive [Recovered/Resolved]
  - Pericardial effusion [Recovered/Resolved]
  - Product dose omission [Unknown]
